FAERS Safety Report 20479531 (Version 1)
Quarter: 2022Q1

REPORT INFORMATION
  Report Type: Spontaneous
  Country: US (occurrence: US)
  Receive Date: 20220216
  Receipt Date: 20220216
  Transmission Date: 20220424
  Serious: Yes (Other)
  Sender: FDA-Public Use
  Company Number: US-BION-010296

PATIENT
  Age: 33 Year
  Sex: Female
  Weight: 63.9 kg

DRUGS (2)
  1. AMPHETAMINE SULFATE [Suspect]
     Active Substance: AMPHETAMINE SULFATE
  2. COCAINE [Suspect]
     Active Substance: COCAINE

REACTIONS (1)
  - Drug use disorder [Unknown]
